FAERS Safety Report 15292838 (Version 1)
Quarter: 2018Q3

REPORT INFORMATION
  Report Type: Spontaneous
  Country: US (occurrence: US)
  Receive Date: 20180806
  Receipt Date: 20180806
  Transmission Date: 20181010
  Serious: No
  Sender: FDA-Public Use
  Company Number: None

PATIENT
  Age: 55 Year
  Sex: Female

DRUGS (1)
  1. AFINITOR [Suspect]
     Active Substance: EVEROLIMUS

REACTIONS (4)
  - Osteonecrosis of jaw [None]
  - Noninfective gingivitis [None]
  - Pulmonary mass [None]
  - Stomatitis [None]

NARRATIVE: CASE EVENT DATE: 20180806
